FAERS Safety Report 7416288-9 (Version None)
Quarter: 2011Q2

REPORT INFORMATION
  Report Type: 
  Country: None (occurrence: None)
  Receive Date: 20110414
  Receipt Date: 20110411
  Transmission Date: 20111010
  Serious: Yes (Death, Other)
  Sender: FDA-Public Use
  Company Number: ES-ELI_LILLY_AND_COMPANY-ES201103005710

PATIENT
  Age: 55 Year
  Sex: Female

DRUGS (4)
  1. FOLIC ACID [Concomitant]
     Dosage: 5 MG, QD
     Route: 048
  2. ALIMTA [Suspect]
     Indication: NON-SMALL CELL LUNG CANCER
     Dosage: UNK, UNKNOWN
     Route: 065
     Dates: start: 20110207
  3. CYANOCOBALAMIN [Concomitant]
     Dosage: 1 MG, EVERY 6WEEKS
     Route: 030
  4. ZOLEDRONIC ACID [Concomitant]
     Indication: METASTASES TO BONE
     Dosage: UNK
     Route: 065
     Dates: start: 20110113

REACTIONS (4)
  - BRAIN DEATH [None]
  - ENZYME ABNORMALITY [None]
  - ENCEPHALOPATHY [None]
  - CEREBROVASCULAR ACCIDENT [None]
